FAERS Safety Report 13184641 (Version 2)
Quarter: 2018Q1

REPORT INFORMATION
  Report Type: Report from Study
  Country: JP (occurrence: JP)
  Receive Date: 20170203
  Receipt Date: 20180327
  Transmission Date: 20180508
  Serious: Yes (Death)
  Sender: FDA-Public Use
  Company Number: JP-AMGEN-JPNCT2017018034

PATIENT
  Age: 62 Year
  Sex: Male
  Weight: 77 kg

DRUGS (2)
  1. DARBEPOETIN ALFA [Suspect]
     Active Substance: DARBEPOETIN ALFA
     Dosage: 240 MUG, UNK
     Route: 058
     Dates: end: 20150520
  2. DARBEPOETIN ALFA [Suspect]
     Active Substance: DARBEPOETIN ALFA
     Indication: MYELODYSPLASTIC SYNDROME
     Dosage: 240 MUG, UNK
     Route: 058
     Dates: start: 20141223

REACTIONS (1)
  - Death [Fatal]

NARRATIVE: CASE EVENT DATE: 20150601
